FAERS Safety Report 7931377-8 (Version None)
Quarter: 2011Q4

REPORT INFORMATION
  Report Type: 
  Country: None (occurrence: None)
  Receive Date: 20111121
  Receipt Date: 20111114
  Transmission Date: 20120403
  Serious: Yes (Death, Hospitalization, Other)
  Sender: FDA-Public Use
  Company Number: US-BAYER-201013027NA

PATIENT
  Age: 39 Year
  Sex: Female
  Weight: 69.388 kg

DRUGS (31)
  1. TRASYLOL [Suspect]
     Indication: COX-MAZE PROCEDURE
     Dosage: 200 ML, LOADING DOSE
     Route: 042
     Dates: start: 20040122, end: 20040122
  2. METOPROLOL TARTRATE [Concomitant]
     Indication: PRODUCT USED FOR UNKNOWN INDICATION
     Dosage: 25 MG, TID
     Route: 048
  3. LEVOPHED [Concomitant]
     Indication: HYPOTENSION
     Dosage: UNK
     Route: 042
     Dates: start: 20040122
  4. TRASYLOL [Suspect]
     Indication: MITRAL VALVE REPLACEMENT
     Dosage: 1 ML, ONCE
     Route: 042
     Dates: start: 20040122, end: 20040122
  5. ALTACE [Concomitant]
     Indication: PRODUCT USED FOR UNKNOWN INDICATION
     Dosage: 2 MG, QD
     Route: 048
  6. CAPTOPRIL [Concomitant]
     Dosage: 25 MG, TID
     Route: 048
     Dates: start: 20030101, end: 20031101
  7. PLAVIX [Concomitant]
     Indication: PRODUCT USED FOR UNKNOWN INDICATION
     Dosage: 75 MG, QD
     Route: 048
     Dates: start: 20020101
  8. BACTRIM DS [Concomitant]
     Indication: PRODUCT USED FOR UNKNOWN INDICATION
     Dosage: MONDAY, WEDNESDAY, FRIDAY
     Route: 048
  9. VIOXX [Concomitant]
     Indication: PRODUCT USED FOR UNKNOWN INDICATION
     Dosage: 25 MG, QD
     Route: 048
  10. GUAIFENESIN [Concomitant]
     Indication: PRODUCT USED FOR UNKNOWN INDICATION
     Dosage: 10 ML, AS NEEDED
     Route: 048
  11. EPIVIR [Concomitant]
     Indication: PRODUCT USED FOR UNKNOWN INDICATION
     Dosage: 100 MG, QD
     Route: 048
  12. XANAX [Concomitant]
     Indication: PRODUCT USED FOR UNKNOWN INDICATION
     Dosage: 0.25 MG, AS NEEDED
     Route: 048
  13. AZT [Concomitant]
     Indication: PRODUCT USED FOR UNKNOWN INDICATION
     Dosage: UNK
     Dates: start: 19960101, end: 20040101
  14. PROTAMINE SULFATE [Concomitant]
     Dosage: 300 MG, UNK
     Route: 042
     Dates: start: 20040122
  15. HEPARIN [Concomitant]
     Dosage: 300000 U, UNK
     Route: 042
     Dates: start: 20040122
  16. KEFZOL [Concomitant]
     Indication: PRODUCT USED FOR UNKNOWN INDICATION
     Dosage: 1 G, QD
     Route: 042
  17. EPINEPHRINE [Concomitant]
     Dosage: UNK
     Route: 042
     Dates: start: 20040122
  18. VANCOMYCIN [Concomitant]
     Dosage: 15 G, UNK
     Route: 042
     Dates: start: 20040122
  19. EPIVIR [Concomitant]
     Dosage: 150 MG, UNK
     Dates: start: 19960101, end: 20040101
  20. ACETYLSALICYLIC ACID SRT [Concomitant]
     Dosage: 325 MG, QD
     Route: 048
  21. MIDAZOLAM [Concomitant]
     Dosage: UNK
     Route: 042
     Dates: start: 20040122
  22. RENAGEL [Concomitant]
     Indication: PRODUCT USED FOR UNKNOWN INDICATION
     Dosage: 800 MG, TID
     Route: 048
     Dates: start: 20030101
  23. NEPHROCAPS [Concomitant]
     Indication: PRODUCT USED FOR UNKNOWN INDICATION
     Dosage: 1 DF, QD
     Route: 048
  24. NORVASC [Concomitant]
     Indication: PRODUCT USED FOR UNKNOWN INDICATION
     Dosage: 5 MG, QD
     Route: 048
  25. AZACTAM [Concomitant]
     Dosage: 1 G, UNK
     Route: 042
     Dates: start: 20040122
  26. SOLU-MEDROL [Concomitant]
     Dosage: 250 MG, UNK
     Route: 042
     Dates: start: 20040122
  27. MANNITOL [Concomitant]
     Dosage: 25 G, UNK
     Route: 042
     Dates: start: 20040122
  28. TRASYLOL [Suspect]
     Indication: CARDIAC OPERATION
     Dosage: 50 ML/HOUR, INFUSION
     Route: 042
     Dates: start: 20040122, end: 20040122
  29. EPOGEN [Concomitant]
     Indication: PRODUCT USED FOR UNKNOWN INDICATION
     Dosage: 10000 U, UNK
  30. QUININE SULFATE [Concomitant]
     Indication: PRODUCT USED FOR UNKNOWN INDICATION
     Dosage: 260 MG, AS NEEDED
     Route: 048
  31. ZANTAC [Concomitant]
     Dosage: 50 MG, UNK
     Route: 042
     Dates: start: 20040122

REACTIONS (13)
  - DEATH [None]
  - MULTI-ORGAN FAILURE [None]
  - RENAL FAILURE [None]
  - ANHEDONIA [None]
  - RENAL INJURY [None]
  - RENAL IMPAIRMENT [None]
  - INJURY [None]
  - EMOTIONAL DISTRESS [None]
  - UNEVALUABLE EVENT [None]
  - ANXIETY [None]
  - STRESS [None]
  - FEAR [None]
  - PAIN [None]
